FAERS Safety Report 6173521-1 (Version None)
Quarter: 2009Q2

REPORT INFORMATION
  Report Type: 
  Country: None (occurrence: None)
  Receive Date: 20090430
  Receipt Date: 20090422
  Transmission Date: 20091009
  Serious: Yes (Other)
  Sender: FDA-Public Use
  Company Number: B0540353A

PATIENT
  Sex: Female
  Weight: 4 kg

DRUGS (7)
  1. SERETIDE DISKUS [Suspect]
     Indication: ASTHMA
     Dosage: 2PUFF TWICE PER DAY
  2. VENTOLIN [Suspect]
     Indication: ASTHMA
  3. SOLUPRED [Suspect]
     Indication: ASTHMA
  4. AERIUS [Suspect]
     Indication: ASTHMA
     Dosage: 1TAB PER DAY
  5. BRICANYL [Suspect]
     Indication: ASTHMA
  6. ATROVENT [Suspect]
     Indication: ASTHMA
  7. RHINOCORT [Suspect]
     Indication: ASTHMA

REACTIONS (5)
  - DRUG EXPOSURE DURING PREGNANCY [None]
  - HYPOCALCAEMIA [None]
  - MULTIPLE FRACTURES [None]
  - NEONATAL INFECTION [None]
  - OSTEOPOROSIS [None]
